FAERS Safety Report 5918569-4 (Version None)
Quarter: 2008Q4

REPORT INFORMATION
  Report Type: 
  Country: None (occurrence: None)
  Receive Date: 20081015
  Receipt Date: 20081008
  Transmission Date: 20090506
  Serious: Yes (Hospitalization)
  Sender: FDA-Public Use
  Company Number: FR-ABBOTT-08P-056-0481433-00

PATIENT
  Age: 27 Year
  Sex: Female

DRUGS (6)
  1. DEPAKOTE [Suspect]
     Indication: BIPOLAR I DISORDER
     Dates: end: 20070907
  2. HEPTAMINOL HYDROCHLORIDE [Suspect]
     Indication: BIPOLAR I DISORDER
     Dates: end: 20070907
  3. OLANZAPINE [Suspect]
     Indication: BIPOLAR I DISORDER
  4. CHLORPROMAZINE HCL [Concomitant]
     Indication: DRUG USE FOR UNKNOWN INDICATION
  5. OXAZEPAM [Concomitant]
     Indication: DRUG USE FOR UNKNOWN INDICATION
  6. ZOLPIDEM [Concomitant]
     Indication: DRUG USE FOR UNKNOWN INDICATION

REACTIONS (1)
  - HOSPITALISATION [None]
